FAERS Safety Report 7793441-6 (Version None)
Quarter: 2011Q4

REPORT INFORMATION
  Report Type: 
  Country: None (occurrence: None)
  Receive Date: 20111003
  Receipt Date: 20110926
  Transmission Date: 20120403
  Serious: Yes (Hospitalization, Other)
  Sender: FDA-Public Use
  Company Number: GXKR2005DK04164

PATIENT
  Sex: Female
  Weight: 80 kg

DRUGS (1)
  1. METFORMIN HCL [Suspect]
     Indication: INFERTILITY
     Dosage: 500 MG, TID
     Route: 048
     Dates: start: 20040611, end: 20040722

REACTIONS (2)
  - PREMATURE SEPARATION OF PLACENTA [None]
  - MATERNAL EXPOSURE DURING PREGNANCY [None]
